FAERS Safety Report 8539553-0 (Version None)
Quarter: 2012Q3

REPORT INFORMATION
  Report Type: 
  Country: None (occurrence: None)
  Receive Date: 20120726
  Receipt Date: 20120712
  Transmission Date: 20120928
  Serious: Yes (Other)
  Sender: FDA-Public Use
  Company Number: US-ELI_LILLY_AND_COMPANY-US201207005001

PATIENT
  Sex: Female

DRUGS (6)
  1. CYMBALTA [Suspect]
     Dosage: 120 MG, UNK
     Dates: start: 20100801, end: 20110201
  2. SYNTHROID [Concomitant]
     Indication: THYROID DISORDER
     Dosage: 15 UG, UNK
     Dates: start: 20050101
  3. MULTI-VITAMIN [Concomitant]
  4. WELLBUTRIN XL [Concomitant]
     Indication: DEPRESSION
     Dosage: UNK
     Dates: start: 20000101
  5. CYTOMEL [Concomitant]
     Indication: THYROID DISORDER
     Dosage: 10 MG, UNK
     Dates: start: 20060101
  6. BUSPAR [Concomitant]
     Indication: DEPRESSION
     Dosage: 5 MG, UNK
     Dates: start: 20100101

REACTIONS (4)
  - JAUNDICE [None]
  - PARAESTHESIA [None]
  - WEIGHT INCREASED [None]
  - SENSORY DISTURBANCE [None]
